FAERS Safety Report 9387836 (Version 1)
Quarter: 2013Q3

REPORT INFORMATION
  Report Type: Spontaneous
  Country: DE (occurrence: DE)
  Receive Date: 20130708
  Receipt Date: 20130708
  Transmission Date: 20140515
  Serious: Yes (Other)
  Sender: FDA-Public Use
  Company Number: DE-EISAI INC-E2007-01185-SPO-DE

PATIENT
  Age: 21 Year
  Sex: Female

DRUGS (3)
  1. FYCOMPA (PERAMPANEL) [Suspect]
     Indication: EPILEPSY
     Route: 048
     Dates: start: 201301
  2. VALPROIC ACID [Interacting]
     Indication: EPILEPSY
     Dosage: 1000 MG (2X 500MG)
     Route: 048
     Dates: start: 201301, end: 20130517
  3. VALPROIC ACID [Interacting]
     Dosage: 750 MG DAILY
     Route: 048
     Dates: start: 20130518

REACTIONS (5)
  - Ataxia [Recovering/Resolving]
  - Dysarthria [Recovering/Resolving]
  - Somnolence [Recovering/Resolving]
  - Weight increased [Recovering/Resolving]
  - Drug interaction [Recovering/Resolving]
